FAERS Safety Report 4867769-3 (Version None)
Quarter: 2005Q4

REPORT INFORMATION
  Report Type: 
  Country: None (occurrence: None)
  Receive Date: 20051222
  Receipt Date: 20051222
  Transmission Date: 20060501
  Serious: Yes (Other)
  Sender: FDA-Public Use
  Company Number: None

PATIENT
  Age: 52 Year
  Sex: Female
  Weight: 110.6777 kg

DRUGS (2)
  1. QVAR 80 [Suspect]
     Indication: ASTHMA
     Dosage: 2 PUFFS -160 MCG-  BID  PO
     Route: 048
  2. QVAR 80 [Suspect]
     Indication: ASTHMA
     Dosage: 2 PUFFS  -160 MCG-   BID   PO
     Route: 048

REACTIONS (4)
  - ASTHMA [None]
  - CONDITION AGGRAVATED [None]
  - PHARMACEUTICAL PRODUCT COMPLAINT [None]
  - POOR QUALITY DRUG ADMINISTERED [None]
